FAERS Safety Report 6011715-6 (Version None)
Quarter: 2008Q4

REPORT INFORMATION
  Report Type: 
  Country: None (occurrence: None)
  Receive Date: 20081218
  Receipt Date: 19920423
  Transmission Date: 20090506
  Serious: Yes (Death)
  Sender: FDA-Public Use
  Company Number: CA-ROCHE-920270072001

PATIENT
  Sex: Male
  Weight: 73 kg

DRUGS (9)
  1. ZALCITABINE [Suspect]
     Route: 048
     Dates: end: 19920409
  2. DIFLUCAN [Concomitant]
     Route: 048
     Dates: start: 19920304, end: 19920415
  3. COPHYLAC [Concomitant]
     Route: 065
     Dates: start: 19920318, end: 19920415
  4. DIGOXIN [Concomitant]
     Route: 048
     Dates: start: 19920304, end: 19920415
  5. FUROSEMIDE [Concomitant]
     Route: 048
     Dates: start: 19920304, end: 19920415
  6. CYTOVENE [Concomitant]
     Route: 042
     Dates: start: 19920304, end: 19920409
  7. ENALAPRIL MALEATE [Concomitant]
     Route: 048
     Dates: start: 19920308, end: 19920415
  8. SLOW-K [Concomitant]
     Route: 048
     Dates: start: 19920319, end: 19920415
  9. PENTAMIDINE [Concomitant]
     Route: 065

REACTIONS (2)
  - CYTOMEGALOVIRUS MYOCARDITIS [None]
  - KAPOSI'S SARCOMA [None]
